FAERS Safety Report 24105138 (Version 1)
Quarter: 2024Q3

REPORT INFORMATION
  Report Type: Spontaneous
  Country: US (occurrence: None)
  Receive Date: 20240716
  Receipt Date: 20240716
  Transmission Date: 20241016
  Serious: No
  Sender: Public
  Company Number: None

PATIENT
  Age: 22 Year
  Sex: Male

DRUGS (17)
  1. EPIDIOLEX [Suspect]
     Active Substance: CANNABIDIOL
     Indication: Seizure
     Dosage: FREQUENCY : TWICE A DAY;?
     Route: 048
  2. Albuterol 0.083% nebulizer solution [Concomitant]
  3. BUDESONIDE [Concomitant]
  4. SINGULAIR [Concomitant]
  5. DEPAKOTE [Concomitant]
  6. LAMOTRIGINE [Concomitant]
  7. LEVOTHYROXINE [Concomitant]
  8. TOPAMAX [Concomitant]
  9. CALCIUM [Concomitant]
  10. KEPPRA [Concomitant]
  11. POTASSIUM CITRATE [Concomitant]
  12. dilantin [Concomitant]
  13. CLOBAZAM [Concomitant]
  14. BACLOFEN [Concomitant]
  15. VIGABATRIN [Concomitant]
  16. vitamin C [Concomitant]
  17. vitamin D [Concomitant]

REACTIONS (2)
  - Diarrhoea [None]
  - Therapy change [None]

NARRATIVE: CASE EVENT DATE: 20240628
